FAERS Safety Report 23150150 (Version 1)
Quarter: 2023Q4

REPORT INFORMATION
  Report Type: Spontaneous
  Country: RU (occurrence: RU)
  Receive Date: 20231106
  Receipt Date: 20231106
  Transmission Date: 20240110
  Serious: Yes (Other)
  Sender: FDA-Public Use
  Company Number: None

PATIENT
  Age: 3 Year
  Sex: Male
  Weight: 16 kg

DRUGS (1)
  1. ORKAMBI [Suspect]
     Active Substance: IVACAFTOR\LUMACAFTOR
     Indication: Cystic fibrosis
     Dosage: 1 DOSAGE FORM, BID
     Route: 048
     Dates: start: 20221201, end: 20231013

REACTIONS (6)
  - Dyspepsia [Recovering/Resolving]
  - Listless [Unknown]
  - Food refusal [Unknown]
  - Asthenia [Unknown]
  - Exercise tolerance decreased [Unknown]
  - Weight gain poor [Unknown]

NARRATIVE: CASE EVENT DATE: 20221201
